FAERS Safety Report 8215977-6 (Version None)
Quarter: 2012Q1

REPORT INFORMATION
  Report Type: 
  Country: None (occurrence: None)
  Receive Date: 20120316
  Receipt Date: 20120313
  Transmission Date: 20120608
  Serious: Yes (Other)
  Sender: FDA-Public Use
  Company Number: US-PFIZER INC-2012068232

PATIENT
  Sex: Female

DRUGS (4)
  1. CHANTIX [Suspect]
     Dosage: UNK
  2. ZOLOFT [Concomitant]
     Dosage: 100 MG, 1X/DAY
  3. TRAZODONE [Concomitant]
     Dosage: 50 MG, 1X/DAY
  4. KLONOPIN [Concomitant]
     Dosage: 1 MG, AS NEEDED

REACTIONS (3)
  - NAUSEA [None]
  - DEPRESSION [None]
  - INSOMNIA [None]
